FAERS Safety Report 7232043-7 (Version None)
Quarter: 2011Q1

REPORT INFORMATION
  Report Type: 
  Country: None (occurrence: None)
  Receive Date: 20110118
  Receipt Date: 20110112
  Transmission Date: 20110831
  Serious: Yes (Other)
  Sender: FDA-Public Use
  Company Number: US-ELI_LILLY_AND_COMPANY-US201101003461

PATIENT
  Sex: Female

DRUGS (3)
  1. HUMALOG [Concomitant]
     Dosage: UNK, AS NEEDED
  2. HUMULIN N [Suspect]
     Indication: DIABETES MELLITUS
     Dosage: UNK, 2/D
  3. EYE DROPS [Concomitant]

REACTIONS (2)
  - BLINDNESS [None]
  - INCORRECT DOSE ADMINISTERED [None]
